FAERS Safety Report 7942405-8 (Version None)
Quarter: 2011Q4

REPORT INFORMATION
  Report Type: 
  Country: None (occurrence: None)
  Receive Date: 20111122
  Receipt Date: 20110729
  Transmission Date: 20120403
  Serious: No
  Sender: FDA-Public Use
  Company Number: PHHY2011US69194

PATIENT
  Age: 45 Year
  Sex: Male
  Weight: 99.8 kg

DRUGS (2)
  1. GILENYA [Suspect]
     Dosage: 0.5MG, QD, ORAL
     Route: 048
  2. NEXIUM (ESOMEPRAZOLE MAGNESIUM) TABLET [Concomitant]

REACTIONS (2)
  - VISION BLURRED [None]
  - MASS [None]
